FAERS Safety Report 17430886 (Version 2)
Quarter: 2020Q1

REPORT INFORMATION
  Report Type: Spontaneous
  Country: ES (occurrence: ES)
  Receive Date: 20200218
  Receipt Date: 20200228
  Transmission Date: 20200409
  Serious: Yes (Hospitalization, Other)
  Sender: FDA-Public Use
  Company Number: ES-GRUNENTHAL-2020-100532

PATIENT
  Age: 45 Year
  Sex: Female

DRUGS (4)
  1. FENTANYL. [Concomitant]
     Active Substance: FENTANYL
     Indication: PRODUCT USED FOR UNKNOWN INDICATION
     Dosage: 25 MICROGRAM, 1/HR
     Route: 062
     Dates: start: 20200110, end: 20200110
  2. QUTENZA [Suspect]
     Active Substance: CAPSAICIN
     Indication: NEURALGIA
     Dosage: 1 DF, UNK
     Route: 003
     Dates: start: 20200110, end: 20200110
  3. VERSATIS [Concomitant]
     Active Substance: LIDOCAINE
     Indication: PRODUCT USED FOR UNKNOWN INDICATION
     Dosage: UNK
     Route: 065
  4. QUTENZA [Suspect]
     Active Substance: CAPSAICIN
     Indication: NEURALGIA

REACTIONS (5)
  - Application site erythema [Recovered/Resolved]
  - Application site pain [Recovered/Resolved]
  - Condition aggravated [Unknown]
  - Application site oedema [Recovered/Resolved]
  - Application site vesicles [Recovered/Resolved]

NARRATIVE: CASE EVENT DATE: 20200110
